FAERS Safety Report 15550915 (Version 1)
Quarter: 2018Q4

REPORT INFORMATION
  Report Type: Spontaneous
  Country: US (occurrence: US)
  Receive Date: 20181020
  Receipt Date: 20181020
  Transmission Date: 20190205
  Serious: Yes (Disabling, Other)
  Sender: FDA-Public Use
  Company Number: None

PATIENT
  Age: 58 Year
  Sex: Male
  Weight: 83.25 kg

DRUGS (5)
  1. DEPO-TESTOSTERONE [Concomitant]
     Active Substance: TESTOSTERONE CYPIONATE
  2. COLACE [Concomitant]
     Active Substance: DOCUSATE SODIUM
  3. ACYCLOVIR. [Concomitant]
     Active Substance: ACYCLOVIR
  4. FENOFIBRATE. [Concomitant]
     Active Substance: FENOFIBRATE
  5. MONTELUKAST 10 MG TABLET. GENERIC FOR: SINGULAIR [Suspect]
     Active Substance: MONTELUKAST SODIUM
     Indication: ASTHMA
     Dosage: ?          QUANTITY:1 DF DOSAGE FORM;?
     Route: 048
     Dates: start: 20180831, end: 20181020

REACTIONS (8)
  - Anxiety [None]
  - Depression [None]
  - Agitation [None]
  - Hypertension [None]
  - Hostility [None]
  - Suicidal ideation [None]
  - Nightmare [None]
  - Headache [None]

NARRATIVE: CASE EVENT DATE: 20181020
